FAERS Safety Report 5960022-6 (Version None)
Quarter: 2008Q4

REPORT INFORMATION
  Report Type: 
  Country: None (occurrence: None)
  Receive Date: 20081120
  Receipt Date: 20081118
  Transmission Date: 20090506
  Serious: Yes (Hospitalization)
  Sender: FDA-Public Use
  Company Number: GB-MERCK-0810GBR00145

PATIENT
  Age: 56 Year
  Sex: Female

DRUGS (6)
  1. ZOCOR [Suspect]
     Indication: BLOOD CHOLESTEROL INCREASED
     Route: 048
     Dates: start: 20080501, end: 20080801
  2. LANSOPRAZOLE [Suspect]
     Indication: GASTRIC PH DECREASED
     Route: 048
     Dates: start: 20080401, end: 20080901
  3. CODEINE PHOSPHATE AND ACETAMINOPHEN [Concomitant]
     Route: 048
  4. DICLOFENAC [Concomitant]
     Route: 048
  5. FLUOXETINE [Concomitant]
     Route: 048
  6. TIBOLONE [Concomitant]
     Route: 048

REACTIONS (6)
  - ASTHENIA [None]
  - EYE SWELLING [None]
  - MALAISE [None]
  - NIGHTMARE [None]
  - PHARYNGEAL OEDEMA [None]
  - SWOLLEN TONGUE [None]
